FAERS Safety Report 4832130-4 (Version None)
Quarter: 2005Q4

REPORT INFORMATION
  Report Type: 
  Country: None (occurrence: None)
  Receive Date: 20051114
  Receipt Date: 20051101
  Transmission Date: 20060501
  Serious: Yes (Other)
  Sender: FDA-Public Use
  Company Number: CHNY2005JP01970

PATIENT
  Age: 69 Year
  Sex: Male

DRUGS (1)
  1. PURSENNID (NCH)(SENNA GYLCOSIDES (CA SALTS OF PURIFIED SENNA EXTRACT)) [Suspect]
     Indication: CONSTIPATION
     Dosage: 36 MG, PRN, ORAL
     Route: 048
     Dates: end: 20051031

REACTIONS (1)
  - INAPPROPRIATE ANTIDIURETIC HORMONE SECRETION [None]
